FAERS Safety Report 4664660-2 (Version None)
Quarter: 2005Q2

REPORT INFORMATION
  Report Type: 
  Country: None (occurrence: None)
  Receive Date: 20050516
  Receipt Date: 20050503
  Transmission Date: 20051028
  Serious: Yes (Hospitalization)
  Sender: FDA-Public Use
  Company Number: 2005070514

PATIENT
  Age: 56 Year
  Sex: Female
  Weight: 42.5 kg

DRUGS (4)
  1. FLUCONAZOLE [Suspect]
     Indication: ILL-DEFINED DISORDER
     Dosage: 100 MG (100 MG, DAILY), ORAL
     Route: 048
     Dates: start: 20041006
  2. PREDNISONE [Suspect]
     Indication: ILL-DEFINED DISORDER
     Dosage: 22.5 MG (7.5 MG, TID)
     Dates: start: 20041006
  3. LOSARTAN POTASSIUM [Suspect]
     Indication: ILL-DEFINED DISORDER
     Dosage: 200 MG (200 MG, DAILY), ORAL
     Route: 048
     Dates: start: 20041018
  4. CYCLOSPORINE [Concomitant]

REACTIONS (2)
  - DRUG INTERACTION [None]
  - HYPOKALAEMIA [None]
